FAERS Safety Report 4724558-8 (Version None)
Quarter: 2005Q3

REPORT INFORMATION
  Report Type: 
  Country: None (occurrence: None)
  Receive Date: 20050726
  Receipt Date: 20050711
  Transmission Date: 20060218
  Serious: Yes (Hospitalization)
  Sender: FDA-Public Use
  Company Number: IT-AMGEN-UK142042

PATIENT
  Sex: Female

DRUGS (4)
  1. KINERET [Suspect]
     Indication: DRUG USE FOR UNKNOWN INDICATION
     Route: 058
  2. IBUPROFEN [Concomitant]
     Route: 065
  3. PREDNISONE [Concomitant]
     Route: 065
  4. RIOPAN [Concomitant]
     Route: 048

REACTIONS (4)
  - DERMATITIS [None]
  - PYREXIA [None]
  - SERUM FERRITIN INCREASED [None]
  - TRANSAMINASES INCREASED [None]
